FAERS Safety Report 7380196-2 (Version None)
Quarter: 2011Q1

REPORT INFORMATION
  Report Type: 
  Country: None (occurrence: None)
  Receive Date: 20110329
  Receipt Date: 20101209
  Transmission Date: 20110831
  Serious: No
  Sender: FDA-Public Use
  Company Number: US-MYLANLABS-2010S1022724

PATIENT
  Age: 66 Year
  Sex: Female
  Weight: 83.92 kg

DRUGS (5)
  1. TENORMIN [Concomitant]
  2. LIPITOR [Concomitant]
  3. SULFADINE [Concomitant]
     Dosage: TAKEN FOR YEARS
  4. ESTRADIOL [Suspect]
     Indication: HORMONE REPLACEMENT THERAPY
     Dosage: QW
     Route: 062
     Dates: start: 20101203, end: 20101208
  5. PRILOSEC [Concomitant]

REACTIONS (4)
  - APPLICATION SITE PAIN [None]
  - APPLICATION SITE PRURITUS [None]
  - APPLICATION SITE ERYTHEMA [None]
  - APPLICATION SITE VESICLES [None]
